FAERS Safety Report 13987305 (Version 1)
Quarter: 2017Q3

REPORT INFORMATION
  Report Type: Spontaneous
  Country: AU (occurrence: AU)
  Receive Date: 20170919
  Receipt Date: 20170919
  Transmission Date: 20171128
  Serious: Yes (Other)
  Sender: FDA-Public Use
  Company Number: AU-JNJFOC-20170914872

PATIENT

DRUGS (1)
  1. XARELTO [Suspect]
     Active Substance: RIVAROXABAN
     Indication: PULMONARY THROMBOSIS
     Route: 048
     Dates: start: 2017

REACTIONS (10)
  - Musculoskeletal pain [Unknown]
  - Oedema peripheral [Unknown]
  - Neck pain [Unknown]
  - Weight increased [Unknown]
  - Fatigue [Unknown]
  - Hypothyroidism [Unknown]
  - Hypophagia [Unknown]
  - Pain [Unknown]
  - Hypoaesthesia [Unknown]
  - Dyspnoea [Unknown]

NARRATIVE: CASE EVENT DATE: 2017
